FAERS Safety Report 6518879-6 (Version None)
Quarter: 2009Q4

REPORT INFORMATION
  Report Type: 
  Country: None (occurrence: None)
  Receive Date: 20091228
  Receipt Date: 20091217
  Transmission Date: 20100525
  Serious: Yes (Other)
  Sender: FDA-Public Use
  Company Number: PHHY2009AT56604

PATIENT
  Sex: Male

DRUGS (1)
  1. EUCREAS [Suspect]

REACTIONS (1)
  - TRANSAMINASES INCREASED [None]
